FAERS Safety Report 18291577 (Version 1)
Quarter: 2020Q3

REPORT INFORMATION
  Report Type: Spontaneous
  Country: US (occurrence: US)
  Receive Date: 20200921
  Receipt Date: 20200921
  Transmission Date: 20201103
  Serious: Yes (Other)
  Sender: FDA-Public Use
  Company Number: US-GILEAD-2020-0495218

PATIENT
  Age: 52 Year
  Sex: Male
  Weight: 77.1 kg

DRUGS (65)
  1. VIREAD [Suspect]
     Active Substance: TENOFOVIR DISOPROXIL FUMARATE
     Indication: HIV INFECTION
     Dosage: UNK
     Route: 048
     Dates: start: 2008, end: 201811
  2. AMITRIPTYLINE [Concomitant]
     Active Substance: AMITRIPTYLINE
  3. AZITHROMYCIN ANHYDROUS. [Concomitant]
     Active Substance: AZITHROMYCIN ANHYDROUS
  4. CEPHALEXIN [CEFALEXIN] [Concomitant]
     Active Substance: CEPHALEXIN
  5. COLCHICINE. [Concomitant]
     Active Substance: COLCHICINE
  6. RENVELA [Concomitant]
     Active Substance: SEVELAMER CARBONATE
  7. VALACYCLOVIR [Concomitant]
     Active Substance: VALACYCLOVIR HYDROCHLORIDE
  8. VITAMIN D2 [Concomitant]
     Active Substance: ERGOCALCIFEROL
  9. XYZAL [Concomitant]
     Active Substance: LEVOCETIRIZINE DIHYDROCHLORIDE
  10. CYCLOBENZAPRINE. [Concomitant]
     Active Substance: CYCLOBENZAPRINE
  11. ESZOPICLONE. [Concomitant]
     Active Substance: ESZOPICLONE
  12. OXYCODONE/APAP [Concomitant]
     Active Substance: ACETAMINOPHEN\OXYCODONE HYDROCHLORIDE
  13. EPIVIR [Concomitant]
     Active Substance: LAMIVUDINE
  14. ACYCLOVIR [ACICLOVIR] [Concomitant]
     Active Substance: ACYCLOVIR
  15. CARVEDILOL. [Concomitant]
     Active Substance: CARVEDILOL
  16. DICYCLOMINE [Concomitant]
     Active Substance: DICYCLOMINE HYDROCHLORIDE
  17. DOCUSATE [Concomitant]
     Active Substance: DOCUSATE
  18. LACTULOSE. [Concomitant]
     Active Substance: LACTULOSE
  19. LAMIVUDINE. [Concomitant]
     Active Substance: LAMIVUDINE
  20. LEVOFLOXACIN. [Concomitant]
     Active Substance: LEVOFLOXACIN
  21. METHYLPREDNISOLONE. [Concomitant]
     Active Substance: METHYLPREDNISOLONE
  22. OLANZAPINE. [Concomitant]
     Active Substance: OLANZAPINE
  23. HYDRALAZINE [Concomitant]
     Active Substance: HYDRALAZINE HYDROCHLORIDE
  24. MYRBETRIQ [Concomitant]
     Active Substance: MIRABEGRON
  25. ONDANSETRON [Concomitant]
     Active Substance: ONDANSETRON
  26. OXYCODONE AND ACETAMINOPHEN [Concomitant]
     Active Substance: ACETAMINOPHEN\OXYCODONE HYDROCHLORIDE
  27. PANTOPRAZOLE [Concomitant]
     Active Substance: PANTOPRAZOLE
  28. PLAVIX [Concomitant]
     Active Substance: CLOPIDOGREL BISULFATE
  29. RANITIDINE. [Concomitant]
     Active Substance: RANITIDINE
  30. ISENTRESS [Concomitant]
     Active Substance: RALTEGRAVIR POTASSIUM
  31. SUSTIVA [Concomitant]
     Active Substance: EFAVIRENZ
  32. CEFUROXIME. [Concomitant]
     Active Substance: CEFUROXIME
  33. CLINDAMYCIN. [Concomitant]
     Active Substance: CLINDAMYCIN
  34. CLONIDINE. [Concomitant]
     Active Substance: CLONIDINE
  35. HYDROCODONE/ACETAMINOPHEN [Concomitant]
     Active Substance: ACETAMINOPHEN\HYDROCODONE
  36. KALETRA [Concomitant]
     Active Substance: LOPINAVIR\RITONAVIR
  37. ALLOPURINOL. [Concomitant]
     Active Substance: ALLOPURINOL
  38. CALCIUM [Concomitant]
     Active Substance: CALCIUM
  39. CIPROFLOXACIN. [Concomitant]
     Active Substance: CIPROFLOXACIN
  40. DOXYCYCLINE. [Concomitant]
     Active Substance: DOXYCYCLINE
  41. ESOMEPRAZOLE. [Concomitant]
     Active Substance: ESOMEPRAZOLE MAGNESIUM
  42. LIPITOR [Concomitant]
     Active Substance: ATORVASTATIN CALCIUM
  43. METRONIDAZOLE. [Concomitant]
     Active Substance: METRONIDAZOLE
  44. OXYBUTYNIN. [Concomitant]
     Active Substance: OXYBUTYNIN CHLORIDE
  45. NEXIUM 24HR [Concomitant]
     Active Substance: ESOMEPRAZOLE MAGNESIUM
  46. COMBIVIR [Concomitant]
     Active Substance: LAMIVUDINE\ZIDOVUDINE
  47. HYDROMORPHONE [Concomitant]
     Active Substance: HYDROMORPHONE
  48. LEVAQUIN [Concomitant]
     Active Substance: LEVOFLOXACIN
  49. NEXIUM [Concomitant]
     Active Substance: ESOMEPRAZOLE MAGNESIUM
  50. OXYCODONE HYDROCHLORIDE. [Concomitant]
     Active Substance: OXYCODONE HYDROCHLORIDE
  51. PEG 3350 [Concomitant]
     Active Substance: POLYETHYLENE GLYCOL 3350
  52. PRAVASTATIN. [Concomitant]
     Active Substance: PRAVASTATIN
  53. TAMSULOSIN [Concomitant]
     Active Substance: TAMSULOSIN
  54. TRANSDERM SCOP [Concomitant]
     Active Substance: SCOPOLAMINE
  55. VIREAD [Suspect]
     Active Substance: TENOFOVIR DISOPROXIL FUMARATE
     Dosage: UNK
     Route: 048
     Dates: start: 2006
  56. JULUCA [Concomitant]
     Active Substance: DOLUTEGRAVIR SODIUM\RILPIVIRINE HYDROCHLORIDE
  57. AMOXICILLIN. [Concomitant]
     Active Substance: AMOXICILLIN
  58. ASPIRIN [ACETYLSALICYLIC ACID] [Concomitant]
     Active Substance: ASPIRIN
  59. HYDROCODONE BITARTRATE AND ACETAMINOPHEN [Concomitant]
     Active Substance: ACETAMINOPHEN\HYDROCODONE BITARTRATE
  60. PROAIR HFA [Concomitant]
     Active Substance: ALBUTEROL SULFATE
  61. PROMETHAZINE [Concomitant]
     Active Substance: PROMETHAZINE HYDROCHLORIDE
  62. TIZANIDINE. [Concomitant]
     Active Substance: TIZANIDINE
  63. VALTREX [Concomitant]
     Active Substance: VALACYCLOVIR HYDROCHLORIDE
  64. VENTOLIN [Concomitant]
     Active Substance: ALBUTEROL SULFATE
  65. HYDROXYZINE [Concomitant]
     Active Substance: HYDROXYZINE HYDROCHLORIDE

REACTIONS (9)
  - Chronic kidney disease [Not Recovered/Not Resolved]
  - Renal disorder [Not Recovered/Not Resolved]
  - Anxiety [Not Recovered/Not Resolved]
  - Osteoporosis [Not Recovered/Not Resolved]
  - End stage renal disease [Not Recovered/Not Resolved]
  - Depression [Not Recovered/Not Resolved]
  - Emotional distress [Unknown]
  - Anhedonia [Unknown]
  - Pain [Unknown]

NARRATIVE: CASE EVENT DATE: 2010
